FAERS Safety Report 22371541 (Version 3)
Quarter: 2023Q2

REPORT INFORMATION
  Report Type: Report from Study
  Country: CO (occurrence: CO)
  Receive Date: 20230526
  Receipt Date: 20230626
  Transmission Date: 20230722
  Serious: Yes (Other)
  Sender: FDA-Public Use
  Company Number: CO-002147023-NVSC2022CO239292

PATIENT
  Age: 73 Year
  Sex: Female

DRUGS (2)
  1. COSENTYX [Suspect]
     Active Substance: SECUKINUMAB
     Indication: Psoriasis
     Dosage: 300 MG, QMO
     Route: 058
     Dates: start: 20150505
  2. COSENTYX [Suspect]
     Active Substance: SECUKINUMAB
     Dosage: 300 MG, QMO
     Route: 058

REACTIONS (11)
  - Poisoning [Unknown]
  - Illness [Unknown]
  - Psoriatic arthropathy [Unknown]
  - Finger deformity [Unknown]
  - Pain in extremity [Unknown]
  - Fatigue [Unknown]
  - Bone pain [Unknown]
  - Malaise [Unknown]
  - Cough [Unknown]
  - Psoriasis [Unknown]
  - Skin lesion [Unknown]

NARRATIVE: CASE EVENT DATE: 20230512
